FAERS Safety Report 7832900-4 (Version None)
Quarter: 2011Q4

REPORT INFORMATION
  Report Type: 
  Country: None (occurrence: None)
  Receive Date: 20111019
  Receipt Date: 20111010
  Transmission Date: 20120403
  Serious: Yes (Hospitalization)
  Sender: FDA-Public Use
  Company Number: 1062079

PATIENT
  Age: 15 Year
  Sex: Male
  Weight: 46 kg

DRUGS (2)
  1. GENTAMICIN SULFATE [Suspect]
     Indication: CYSTIC FIBROSIS
     Dosage: INTRAVENOUS (NOT OTHERWISE SPECIFIED)
     Route: 042
  2. CEFEPIME HYDROCHLORIDE [Concomitant]

REACTIONS (7)
  - RENAL FAILURE ACUTE [None]
  - VOMITING [None]
  - FATIGUE [None]
  - HAEMODIALYSIS [None]
  - NEUROTOXICITY [None]
  - ENCEPHALOPATHY [None]
  - DECREASED APPETITE [None]
